FAERS Safety Report 22955206 (Version 3)
Quarter: 2024Q1

REPORT INFORMATION
  Report Type: Spontaneous
  Country: AR (occurrence: AR)
  Receive Date: 20230918
  Receipt Date: 20240322
  Transmission Date: 20240410
  Serious: Yes (Other)
  Sender: FDA-Public Use
  Company Number: AR-PFIZER INC-PV202300155192

PATIENT
  Age: 55 Year
  Sex: Female

DRUGS (1)
  1. IXIFI [Suspect]
     Active Substance: INFLIXIMAB-QBTX
     Indication: Rheumatoid arthritis
     Dosage: UNK, EVERY 3 MONTHS
     Dates: start: 20230904

REACTIONS (5)
  - Diabetes mellitus [Unknown]
  - Stress [Unknown]
  - Thyroid disorder [Unknown]
  - Visual impairment [Not Recovered/Not Resolved]
  - Off label use [Unknown]
